FAERS Safety Report 4755393-2 (Version None)
Quarter: 2005Q3

REPORT INFORMATION
  Report Type: 
  Country: None (occurrence: None)
  Receive Date: 20050826
  Receipt Date: 20050104
  Transmission Date: 20060218
  Serious: Yes (Other)
  Sender: FDA-Public Use
  Company Number: USA-2003-0004886

PATIENT
  Age: 51 Year
  Sex: Female

DRUGS (14)
  1. OXYCONTIN [Suspect]
     Indication: PAIN
     Dosage: 40 MG, BID
  2. LORCET-HD [Concomitant]
  3. ZOLOFT [Concomitant]
  4. BUSPAR [Concomitant]
  5. WELLBUTRIN [Concomitant]
  6. REMERON [Concomitant]
  7. RISPERDAL [Concomitant]
  8. EFFEXOR [Concomitant]
  9. XANAX [Concomitant]
  10. PAXIL [Concomitant]
  11. LORCET-HD [Concomitant]
  12. CITALOPRAM [Concomitant]
  13. CELEXA [Concomitant]
  14. PENLOR DC [Concomitant]

REACTIONS (28)
  - ANXIETY [None]
  - ARTHRALGIA [None]
  - BACK PAIN [None]
  - BLOOD PRESSURE SYSTOLIC INCREASED [None]
  - BURNING SENSATION [None]
  - CHEST PAIN [None]
  - CONDITION AGGRAVATED [None]
  - DEPRESSION [None]
  - DIFFICULTY IN WALKING [None]
  - DRUG DEPENDENCE [None]
  - DRUG WITHDRAWAL SYNDROME [None]
  - DYSPHONIA [None]
  - DYSPNOEA [None]
  - FATIGUE [None]
  - HEADACHE [None]
  - HOT FLUSH [None]
  - INADEQUATE ANALGESIA [None]
  - INSOMNIA [None]
  - JOINT RANGE OF MOTION DECREASED [None]
  - JOINT STIFFNESS [None]
  - MEMORY IMPAIRMENT [None]
  - MUSCLE SPASMS [None]
  - PAIN [None]
  - PAIN IN EXTREMITY [None]
  - PERIPHERAL COLDNESS [None]
  - SKIN DISCOLOURATION [None]
  - UPPER RESPIRATORY TRACT CONGESTION [None]
  - WEIGHT INCREASED [None]
